FAERS Safety Report 4619202-4 (Version None)
Quarter: 2005Q1

REPORT INFORMATION
  Report Type: 
  Country: None (occurrence: None)
  Receive Date: 20050325
  Receipt Date: 20050314
  Transmission Date: 20050727
  Serious: Yes (Other)
  Sender: FDA-Public Use
  Company Number: US-GLAXOSMITHKLINE-A0549572A

PATIENT
  Age: 48 Year
  Sex: Female
  Weight: 58.2 kg

DRUGS (4)
  1. PHAZYME ULTRA STRENGTH SOFTGELS [Suspect]
     Indication: GASTRITIS
     Dates: start: 20041101
  2. PREMPRO [Concomitant]
     Indication: MENOPAUSAL SYMPTOMS
     Dosage: .625MG PER DAY
     Route: 048
  3. PROTONIX [Concomitant]
     Indication: PAIN
     Dosage: 40MG TWICE PER DAY
     Route: 048
  4. NORCO [Concomitant]
     Indication: PAIN
     Route: 048

REACTIONS (1)
  - COLONIC POLYP [None]
